FAERS Safety Report 23897538 (Version 1)
Quarter: 2024Q2

REPORT INFORMATION
  Report Type: Report from Study
  Country: US (occurrence: US)
  Receive Date: 20240524
  Receipt Date: 20240524
  Transmission Date: 20240716
  Serious: Yes (Hospitalization)
  Sender: FDA-Public Use
  Company Number: US-BAYER-2024A071138

PATIENT
  Age: 72 Year
  Sex: Male

DRUGS (1)
  1. XOFIGO [Suspect]
     Active Substance: RADIUM RA-223 DICHLORIDE
     Indication: Hormone-refractory prostate cancer
     Dosage: 155.50 UCI, ONCE EVERY 28 DAYS
     Route: 042
     Dates: start: 20240410, end: 20240410

REACTIONS (2)
  - Blood electrolytes decreased [Unknown]
  - Full blood count abnormal [Unknown]
